FAERS Safety Report 13839003 (Version 5)
Quarter: 2017Q4

REPORT INFORMATION
  Report Type: Spontaneous
  Country: JP (occurrence: JP)
  Receive Date: 20170807
  Receipt Date: 20171024
  Transmission Date: 20180320
  Serious: Yes (Life-Threatening, Other)
  Sender: FDA-Public Use
  Company Number: PHJP2017JP024980

PATIENT
  Age: 56 Year
  Sex: Female
  Weight: 40 kg

DRUGS (7)
  1. AFINITOR [Suspect]
     Active Substance: EVEROLIMUS
     Indication: BREAST CANCER RECURRENT
     Dosage: 10 MG, QD
     Route: 048
     Dates: start: 20170209, end: 20170723
  2. TRANEXAMIC [Concomitant]
     Indication: PROPHYLAXIS
     Dosage: 250 MG, TID
     Route: 048
     Dates: start: 20170209, end: 20170723
  3. MYONAL [Concomitant]
     Active Substance: EPERISONE HYDROCHLORIDE
     Indication: MUSCULOSKELETAL STIFFNESS
     Dosage: 50 MG, BID
     Route: 048
     Dates: start: 20160627, end: 20170723
  4. LOXOPROFEN NA [Suspect]
     Active Substance: LOXOPROFEN SODIUM
     Indication: CANCER PAIN
     Dosage: 60 MG, TID
     Route: 048
     Dates: start: 20160627, end: 20170723
  5. MUCOSTA [Concomitant]
     Active Substance: REBAMIPIDE
     Indication: PROPHYLAXIS
     Dosage: 100 MG, TID
     Route: 048
     Dates: start: 20160201, end: 20170723
  6. AROMASIN [Concomitant]
     Active Substance: EXEMESTANE
     Indication: BREAST CANCER RECURRENT
     Dosage: 25 MG, QD
     Route: 048
     Dates: start: 20170209, end: 20170723
  7. TAKECAB [Concomitant]
     Active Substance: VONOPRAZAN FUMURATE
     Indication: PROPHYLAXIS AGAINST GASTROINTESTINAL ULCER
     Dosage: 10 MG, QD
     Route: 048
     Dates: start: 20160627, end: 20170723

REACTIONS (16)
  - Oesophageal perforation [Recovering/Resolving]
  - Septic embolus [Recovering/Resolving]
  - Pulmonary cavitation [Recovering/Resolving]
  - Tachycardia [Unknown]
  - Haemoglobin decreased [Recovering/Resolving]
  - Pneumoperitoneum [Unknown]
  - Back pain [Unknown]
  - Abdominal pain [Unknown]
  - Melaena [Recovering/Resolving]
  - Breast cancer recurrent [Not Recovered/Not Resolved]
  - Malignant neoplasm progression [Not Recovered/Not Resolved]
  - Small intestinal perforation [Recovering/Resolving]
  - Pneumomediastinum [Recovering/Resolving]
  - Peritonitis [Recovering/Resolving]
  - Hypertension [Unknown]
  - Pyrexia [Unknown]

NARRATIVE: CASE EVENT DATE: 20170710
